FAERS Safety Report 15386446 (Version 2)
Quarter: 2018Q4

REPORT INFORMATION
  Report Type: Spontaneous
  Country: US (occurrence: US)
  Receive Date: 20180914
  Receipt Date: 20181102
  Transmission Date: 20190204
  Serious: Yes (Death, Other)
  Sender: FDA-Public Use
  Company Number: US-VIFOR (INTERNATIONAL) INC.-VIT-2018-08965

PATIENT
  Age: 38 Year
  Sex: Male

DRUGS (23)
  1. VELTASSA [Suspect]
     Active Substance: PATIROMER
     Indication: HYPERKALAEMIA
     Route: 048
     Dates: start: 20180828, end: 20180908
  2. ATORVASTATIN CALCIUM. [Concomitant]
     Active Substance: ATORVASTATIN CALCIUM
  3. CALCITRIOL. [Concomitant]
     Active Substance: CALCITRIOL
  4. ASPIRIN. [Concomitant]
     Active Substance: ASPIRIN
  5. AMIODARONE HCL [Concomitant]
     Active Substance: AMIODARONE HYDROCHLORIDE
  6. SODIUM BICARBONATE. [Concomitant]
     Active Substance: SODIUM BICARBONATE
  7. NIFEDIPINE. [Concomitant]
     Active Substance: NIFEDIPINE
  8. FUROSEMIDE. [Concomitant]
     Active Substance: FUROSEMIDE
  9. MIRCERA [Concomitant]
     Active Substance: METHOXY POLYETHYLENE GLYCOL-EPOETIN BETA
  10. L-ARGININE [Concomitant]
     Active Substance: ARGININE
  11. METOPROLOL SUCCINATE ER [Concomitant]
     Active Substance: METOPROLOL SUCCINATE
  12. ALLOPURINOL. [Concomitant]
     Active Substance: ALLOPURINOL
  13. CALCIUM ACETATE (PHOS BINDER) [Concomitant]
  14. NOVOLOG [Concomitant]
     Active Substance: INSULIN ASPART
  15. ERGOCALCIFEROL. [Concomitant]
     Active Substance: ERGOCALCIFEROL
  16. VITAMIN B1 [Concomitant]
     Active Substance: THIAMINE HYDROCHLORIDE
  17. SENSIPAR [Concomitant]
     Active Substance: CINACALCET HYDROCHLORIDE
  18. FOLIC ACID. [Concomitant]
     Active Substance: FOLIC ACID
  19. CALCITRATE [Concomitant]
     Active Substance: CALCIUM CITRATE
  20. MAGNESIUM [Concomitant]
     Active Substance: MAGNESIUM
  21. VITAMIN B12 [Concomitant]
     Active Substance: CYANOCOBALAMIN
  22. OMEPRAZOLE. [Concomitant]
     Active Substance: OMEPRAZOLE
  23. CARVEDILOL. [Concomitant]
     Active Substance: CARVEDILOL

REACTIONS (2)
  - Death [Fatal]
  - Dialysis [Unknown]

NARRATIVE: CASE EVENT DATE: 20180908
